FAERS Safety Report 7120915-3 (Version None)
Quarter: 2010Q4

REPORT INFORMATION
  Report Type: 
  Country: None (occurrence: None)
  Receive Date: 20101124
  Receipt Date: 20101115
  Transmission Date: 20110411
  Serious: Yes (Other)
  Sender: FDA-Public Use
  Company Number: US-JNJFOC-20101105117

PATIENT
  Age: 14 Year
  Sex: Male
  Weight: 44.6 kg

DRUGS (4)
  1. REMICADE [Suspect]
     Indication: CROHN'S DISEASE
     Route: 042
  2. TYLENOL (CAPLET) [Concomitant]
     Indication: PREMEDICATION
  3. ZYRTEC [Concomitant]
     Indication: PREMEDICATION
  4. PEPCID [Concomitant]
     Indication: PREMEDICATION

REACTIONS (4)
  - ANXIETY [None]
  - DYSPNOEA [None]
  - INFUSION RELATED REACTION [None]
  - SYSTEMIC LUPUS ERYTHEMATOSUS [None]
